FAERS Safety Report 6016307-0 (Version None)
Quarter: 2008Q4

REPORT INFORMATION
  Report Type: 
  Country: None (occurrence: None)
  Receive Date: 20081222
  Receipt Date: 20081212
  Transmission Date: 20090506
  Serious: Yes (Other)
  Sender: FDA-Public Use
  Company Number: KR-JNJFOC-20081203934

PATIENT
  Age: 11 Month
  Sex: Female

DRUGS (3)
  1. TYLENOL-500 [Suspect]
     Route: 063
  2. TYLENOL-500 [Suspect]
     Indication: DRUG EXPOSURE VIA BREAST MILK
     Route: 063
  3. BOTALEXIN [Concomitant]
     Indication: DRUG EXPOSURE VIA BREAST MILK
     Route: 063

REACTIONS (2)
  - ASTHMA [None]
  - DRUG EXPOSURE VIA BREAST MILK [None]
